FAERS Safety Report 4824114-7 (Version None)
Quarter: 2005Q4

REPORT INFORMATION
  Report Type: 
  Country: None (occurrence: None)
  Receive Date: 20051108
  Receipt Date: 20051027
  Transmission Date: 20060501
  Serious: Yes (Hospitalization, Other)
  Sender: FDA-Public Use
  Company Number: US_0509122362

PATIENT
  Age: 72 Year
  Sex: Female

DRUGS (3)
  1. EVISTA [Suspect]
     Indication: OSTEOPOROSIS
     Dates: start: 19980101
  2. MIACALCIN [Concomitant]
  3. FOSAMAX [Concomitant]

REACTIONS (3)
  - CONDITION AGGRAVATED [None]
  - HIP FRACTURE [None]
  - OSTEOPOROSIS [None]
